FAERS Safety Report 8686330 (Version 6)
Quarter: 2012Q4

REPORT INFORMATION
  Report Type: 
  Country: US (occurrence: US)
  Receive Date: 20120726
  Receipt Date: 20121130
  Transmission Date: 20130627
  Serious: Yes (Other)
  Sender: FDA-Public Use
  Company Number: US-PFIZER INC-2011140492

PATIENT
  Age: 38 Year
  Sex: Male
  Weight: 90.7 kg

DRUGS (8)
  1. EFFEXOR XR [Suspect]
     Indication: ANXIETY
     Dosage: 37.5 mg, 1x/day
     Route: 048
     Dates: start: 2002
  2. EFFEXOR XR [Suspect]
     Indication: IRRITABLE BOWEL SYNDROME
     Dosage: 75 mg, 1x/day
     Route: 048
     Dates: start: 200712
  3. EFFEXOR XR [Suspect]
     Indication: DEPRESSION
     Dosage: 37.5 mg, 1x/day
     Route: 048
     Dates: start: 2008, end: 201106
  4. EFFEXOR XR [Suspect]
     Indication: PANIC DISORDER
     Dosage: 79.5mg, daily
     Route: 048
     Dates: start: 20120716
  5. EFFEXOR XR [Suspect]
     Indication: PANIC ATTACK
  6. VENLAFAXINE HYDROCHLORIDE [Suspect]
     Indication: ANXIETY
     Dosage: 37.5 mg, 1x/day
     Route: 048
     Dates: start: 201106, end: 20110622
  7. VENLAFAXINE HYDROCHLORIDE [Suspect]
     Indication: IRRITABLE BOWEL SYNDROME
     Dosage: 75 mg, UNK
     Route: 048
  8. MULTIVITAMINS [Concomitant]
     Indication: SUPPLEMENTATION THERAPY
     Dosage: UNK, once a day

REACTIONS (17)
  - Drug withdrawal syndrome [Unknown]
  - Depression [Not Recovered/Not Resolved]
  - Anxiety [Not Recovered/Not Resolved]
  - Fatigue [Unknown]
  - Dizziness [Unknown]
  - Headache [Not Recovered/Not Resolved]
  - Abnormal dreams [Not Recovered/Not Resolved]
  - Irritable bowel syndrome [Unknown]
  - Drug ineffective [Unknown]
  - Hot flush [Unknown]
  - Panic attack [Unknown]
  - Dyspnoea [Unknown]
  - Back pain [Unknown]
  - Arthralgia [Unknown]
  - Feeling hot [Unknown]
  - Hyperhidrosis [Unknown]
  - Off label use [Unknown]
